FAERS Safety Report 4528270-X (Version None)
Quarter: 2004Q4

REPORT INFORMATION
  Report Type: 
  Country: None (occurrence: None)
  Receive Date: 20041130
  Receipt Date: 20040729
  Transmission Date: 20050328
  Serious: No
  Sender: FDA-Public Use
  Company Number: WAES 0407USA02540

PATIENT
  Sex: Female

DRUGS (4)
  1. ZETIA [Suspect]
     Indication: BLOOD CHOLESTEROL INCREASED
     Dosage: 10 MG DAILY PO
     Route: 048
     Dates: start: 20030610, end: 20030101
  2. HYDRODIURIL [Concomitant]
  3. NORVASC [Concomitant]
  4. SYNTHROID [Concomitant]

REACTIONS (1)
  - OEDEMA [None]
